FAERS Safety Report 4821824-2 (Version None)
Quarter: 2005Q4

REPORT INFORMATION
  Report Type: 
  Country: None (occurrence: None)
  Receive Date: 20051107
  Receipt Date: 20051026
  Transmission Date: 20060501
  Serious: Yes (Other)
  Sender: FDA-Public Use
  Company Number: PHBS2005IE15732

PATIENT
  Age: 60 Year
  Sex: Female

DRUGS (4)
  1. LAMISIL [Suspect]
     Indication: NAIL TINEA
     Dosage: 250 MG/D
     Route: 048
     Dates: start: 20050706, end: 20050928
  2. ELTROXIN [Concomitant]
  3. DELTACORTRIL [Concomitant]
  4. ZIRTEK [Concomitant]

REACTIONS (2)
  - AGEUSIA [None]
  - PAROSMIA [None]
